FAERS Safety Report 8120479-1 (Version None)
Quarter: 2012Q1

REPORT INFORMATION
  Report Type: 
  Country: None (occurrence: None)
  Receive Date: 20120207
  Receipt Date: 20120119
  Transmission Date: 20120608
  Serious: Yes (Other)
  Sender: FDA-Public Use
  Company Number: DE-ELI_LILLY_AND_COMPANY-DE201201006445

PATIENT
  Sex: Male

DRUGS (9)
  1. FOSTER                             /06206901/ [Concomitant]
     Indication: RESPIRATORY DISORDER
     Dosage: UNK, PRN
  2. RAMIPRIL [Concomitant]
     Dosage: UNK
     Dates: start: 19990101
  3. LIPROLOG LISPRO [Suspect]
     Indication: TYPE 2 DIABETES MELLITUS
     Dosage: 17 IU, EACH MORNING
     Route: 058
     Dates: start: 20111207
  4. LIPROLOG LISPRO [Suspect]
     Dosage: 8 IU, EACH EVENING
     Route: 058
     Dates: start: 20111207
  5. ASPIRIN [Concomitant]
     Dosage: 100 DF, UNK
     Dates: start: 19990101
  6. NITROGLYCERIN SPRAY [Concomitant]
     Dosage: UNK, PRN
     Route: 060
  7. LANTUS [Concomitant]
     Dosage: 7 IU, UNK
     Route: 058
     Dates: start: 20080101
  8. ACTRAPID                           /00646001/ [Concomitant]
     Indication: DIABETES MELLITUS
  9. LIPROLOG LISPRO [Suspect]
     Dosage: 7 IU, QD
     Route: 058
     Dates: start: 20111207

REACTIONS (3)
  - ASCITES [None]
  - DYSPNOEA [None]
  - ABDOMINAL DISCOMFORT [None]
